FAERS Safety Report 15137173 (Version 1)
Quarter: 2018Q3

REPORT INFORMATION
  Report Type: Spontaneous
  Country: US (occurrence: US)
  Receive Date: 20180712
  Receipt Date: 20180712
  Transmission Date: 20181010
  Serious: No
  Sender: FDA-Public Use
  Company Number: US-FOUNDATIONCONSUMERHC-2017-US-014135

PATIENT
  Sex: Female

DRUGS (1)
  1. NEXT CHOICE ONE DOSE [Suspect]
     Active Substance: LEVONORGESTREL
     Dosage: 1 TABLET PO
     Route: 048
     Dates: start: 20171119, end: 20171119

REACTIONS (1)
  - Vaginal haemorrhage [Unknown]
